FAERS Safety Report 4527959-6 (Version None)
Quarter: 2004Q4

REPORT INFORMATION
  Report Type: 
  Country: None (occurrence: None)
  Receive Date: 20041123
  Receipt Date: 20031229
  Transmission Date: 20050328
  Serious: Yes (Other)
  Sender: FDA-Public Use
  Company Number: 2003121740

PATIENT
  Age: 67 Year
  Sex: Male
  Weight: 68.0396 kg

DRUGS (16)
  1. LIPITOR [Suspect]
     Indication: HYPERLIPIDAEMIA
     Dosage: 10 MG (DAILY), ORAL
     Route: 048
     Dates: start: 19990101
  2. NEURONTIN [Suspect]
     Indication: FACIAL PAIN
     Dosage: 300 MG (DAILY)
     Dates: start: 20021101, end: 20030801
  3. DETROL LA [Suspect]
     Indication: POLLAKIURIA
     Dosage: ORAL
     Route: 048
     Dates: start: 20021201, end: 20030101
  4. CLOPIDOGREL BISULFATE [Concomitant]
  5. METOPROLOL TARTRATE [Concomitant]
  6. GLYBURIDE [Concomitant]
  7. METFORMIN HCL [Concomitant]
  8. LISINOPRIL [Concomitant]
  9. NITROGLYCERIN [Concomitant]
  10. PANTOPRAZOLE (PANTOPRAZOLE) [Concomitant]
  11. GEMFIBROZIL [Concomitant]
  12. SERETIDE MITE (FLUTICASONE PROPIONATE, SALMETEROL XINAFOATE) [Concomitant]
  13. FENOFIBRATE [Concomitant]
  14. TRIOBE (FOLIC ACID, PYRIDOXINE, CYANOCOBALAMIN) [Concomitant]
  15. ASPIRIN [Concomitant]
  16. TRAZODONE HCL [Concomitant]

REACTIONS (7)
  - DEPRESSION [None]
  - DRUG INEFFECTIVE [None]
  - FACIAL PAIN [None]
  - FEELING ABNORMAL [None]
  - GLAUCOMA [None]
  - POLLAKIURIA [None]
  - TOOTH DISORDER [None]
